FAERS Safety Report 7730789-5 (Version None)
Quarter: 2011Q3

REPORT INFORMATION
  Report Type: 
  Country: None (occurrence: None)
  Receive Date: 20110901
  Receipt Date: 20110901
  Transmission Date: 20111222
  Serious: Yes (Death)
  Sender: FDA-Public Use
  Company Number: None

PATIENT
  Age: 71 Year
  Sex: Female

DRUGS (11)
  1. HYDROCORTISONE [Concomitant]
  2. ARZERRA [Concomitant]
  3. ONDANS [Concomitant]
  4. ACYCLOVIR [Concomitant]
  5. ASPIRIN [Concomitant]
  6. ALLOPURINOL [Concomitant]
  7. SOLU-CORTEF [Concomitant]
  8. REVLIMID [Suspect]
     Indication: CHRONIC LYMPHOCYTIC LEUKAEMIA
     Dosage: REVLIMID 5 MG DAILY ORALLY REVLIMID 5 MG EVERY OTHER DAY ORALLY
     Route: 048
     Dates: start: 20110701
  9. REVLIMID [Suspect]
     Indication: CHRONIC LYMPHOCYTIC LEUKAEMIA
     Dosage: REVLIMID 5 MG DAILY ORALLY REVLIMID 5 MG EVERY OTHER DAY ORALLY
     Route: 048
     Dates: start: 20110601, end: 20110701
  10. DIPHENHYDRAMINE HCL [Concomitant]
  11. FAMOTIDINE [Concomitant]

REACTIONS (1)
  - PANCYTOPENIA [None]
